FAERS Safety Report 23924567 (Version 1)
Quarter: 2024Q2

REPORT INFORMATION
  Report Type: Spontaneous
  Country: US (occurrence: US)
  Receive Date: 20240531
  Receipt Date: 20240531
  Transmission Date: 20240716
  Serious: No
  Sender: FDA-Public Use
  Company Number: US-PFIZER INC-202400180474

PATIENT
  Age: 10 Year
  Sex: Male
  Weight: 20.5 kg

DRUGS (1)
  1. GENOTROPIN [Suspect]
     Active Substance: SOMATROPIN
     Indication: Growth hormone deficiency
     Dosage: 0.6 MG, 1X/DAY; SUBCUTANEOUS ONE INCH AWAY FROM NAVEL AREA, LEFT OR RIGHT THIGH OR BUTTOCKS AREA
     Route: 058
     Dates: start: 202308

REACTIONS (2)
  - Device use issue [Unknown]
  - Device difficult to use [Unknown]

NARRATIVE: CASE EVENT DATE: 20240525
